FAERS Safety Report 4447679-6 (Version None)
Quarter: 2004Q3

REPORT INFORMATION
  Report Type: 
  Country: None (occurrence: None)
  Receive Date: 20040913
  Receipt Date: 20040907
  Transmission Date: 20050211
  Serious: Yes (Death)
  Sender: FDA-Public Use
  Company Number: PHBS2004US11910

PATIENT
  Sex: Female

DRUGS (8)
  1. CYCLOSPORINE [Suspect]
     Indication: GRAFT VERSUS HOST DISEASE
     Route: 065
  2. VORICONAZOLE [Concomitant]
     Indication: ANTIFUNGAL PROPHYLAXIS
     Dosage: 200 MG, BID
     Route: 048
  3. VORICONAZOLE [Concomitant]
     Dosage: 200 MG, BID
     Route: 042
  4. LEVOFLOXACIN [Concomitant]
     Indication: FEBRILE NEUTROPENIA
  5. AZTREONAM [Concomitant]
     Indication: FEBRILE NEUTROPENIA
  6. MYCOPHENOLATE MOFETIL [Concomitant]
     Indication: GRAFT VERSUS HOST DISEASE
  7. METHYLPREDNISOLONE [Concomitant]
     Indication: GRAFT VERSUS HOST DISEASE
  8. ANTITHYMOCYTE IMMUNOGLOBULIN [Concomitant]

REACTIONS (4)
  - BRAIN STEM INFARCTION [None]
  - COMA [None]
  - HEMIPARESIS [None]
  - ZYGOMYCOSIS [None]
